FAERS Safety Report 15533114 (Version 1)
Quarter: 2018Q4

REPORT INFORMATION
  Report Type: Report from Study
  Country: US (occurrence: US)
  Receive Date: 20181019
  Receipt Date: 20181019
  Transmission Date: 20190205
  Serious: No
  Sender: FDA-Public Use
  Company Number: US-AMGEN-USASL2018109703

PATIENT
  Age: 70 Year
  Sex: Female

DRUGS (3)
  1. REPATHA [Suspect]
     Active Substance: EVOLOCUMAB
     Indication: HYPERCHOLESTEROLAEMIA
     Dosage: 140 MG, Q2WK
     Route: 065
  2. REPATHA [Suspect]
     Active Substance: EVOLOCUMAB
     Indication: TYPE IIA HYPERLIPIDAEMIA
  3. REPATHA [Suspect]
     Active Substance: EVOLOCUMAB
     Indication: BLOOD CHOLESTEROL INCREASED

REACTIONS (10)
  - Therapeutic response unexpected [Unknown]
  - Injection site haemorrhage [Recovered/Resolved]
  - Dry skin [Unknown]
  - Fatigue [Unknown]
  - Injection site bruising [Unknown]
  - Injection site pain [Unknown]
  - Angiopathy [Unknown]
  - Pain [Unknown]
  - Dysphonia [Unknown]
  - Alopecia [Unknown]
